FAERS Safety Report 25222051 (Version 2)
Quarter: 2025Q4

REPORT INFORMATION
  Report Type: Report from Study
  Country: US (occurrence: US)
  Receive Date: 20250421
  Receipt Date: 20251106
  Transmission Date: 20260118
  Serious: Yes (Other)
  Sender: TEVA
  Company Number: US-TEVA-2018-US-866521

PATIENT
  Age: 71 Year
  Sex: Male

DRUGS (10)
  1. ATENOLOL [Suspect]
     Active Substance: ATENOLOL
     Indication: Blood pressure measurement
     Route: 065
  2. METFORMIN [Concomitant]
     Active Substance: METFORMIN HYDROCHLORIDE
     Indication: Product used for unknown indication
     Dosage: DOSAGE TEXT: 500 MG
     Route: 065
  3. SIMVASTATIN [Concomitant]
     Active Substance: SIMVASTATIN
     Indication: Product used for unknown indication
     Dosage: DOSAGE TEXT: 10 MG
     Route: 065
  4. IRBESARTAN [Concomitant]
     Active Substance: IRBESARTAN
     Indication: Product used for unknown indication
     Dosage: DOSAGE TEXT: 150 MG
     Route: 048
  5. LUPRON DEPOT [Concomitant]
     Active Substance: LEUPROLIDE ACETATE
     Indication: Product used for unknown indication
     Route: 030
  6. XTANDI [Suspect]
     Active Substance: ENZALUTAMIDE
     Indication: Hormone-refractory prostate cancer
     Dosage: 2018-03-31
     Route: 048
     Dates: start: 20171107
  7. XTANDI [Suspect]
     Active Substance: ENZALUTAMIDE
     Indication: Hormone-refractory prostate cancer
     Route: 048
     Dates: start: 201612, end: 20180121
  8. XTANDI [Suspect]
     Active Substance: ENZALUTAMIDE
     Indication: Hormone-refractory prostate cancer
     Route: 048
     Dates: start: 201804
  9. WARFARIN [Concomitant]
     Active Substance: WARFARIN
     Indication: Product used for unknown indication
     Dosage: DOSAGE TEXT: 6 MG
     Route: 048
  10. WARFARIN [Concomitant]
     Active Substance: WARFARIN
     Indication: Product used for unknown indication
     Dosage: DOSAGE TEXT: 2 MG
     Route: 048

REACTIONS (19)
  - Blindness [Not Recovered/Not Resolved]
  - Pain [Unknown]
  - Urinary tract infection [Unknown]
  - Treatment noncompliance [Unknown]
  - Bladder pain [Recovering/Resolving]
  - Visual impairment [Not Recovered/Not Resolved]
  - Vitreous floaters [Unknown]
  - Pelvic pain [Not Recovered/Not Resolved]
  - Weight increased [Not Recovered/Not Resolved]
  - Vision blurred [Not Recovered/Not Resolved]
  - Bone pain [Not Recovered/Not Resolved]
  - Diarrhoea [Not Recovered/Not Resolved]
  - Arthralgia [Unknown]
  - Myalgia [Not Recovered/Not Resolved]
  - Muscular weakness [Unknown]
  - Fatigue [Not Recovered/Not Resolved]
  - Asthenia [Not Recovered/Not Resolved]
  - Constipation [Not Recovered/Not Resolved]
  - SARS-CoV-2 test positive [Unknown]
